FAERS Safety Report 10164438 (Version 1)
Quarter: 2014Q2

REPORT INFORMATION
  Report Type: Spontaneous
  Country: US (occurrence: US)
  Receive Date: 20140510
  Receipt Date: 20140510
  Transmission Date: 20141212
  Serious: No
  Sender: FDA-Public Use
  Company Number: US-BRISTOL-MYERS SQUIBB COMPANY-20155776

PATIENT
  Age: 60 Year
  Sex: Female
  Weight: 101.13 kg

DRUGS (4)
  1. BYETTA PEN DISPOSABLE [Suspect]
     Indication: TYPE 2 DIABETES MELLITUS
     Route: 058
     Dates: start: 20130121
  2. LORAZEPAM [Concomitant]
  3. JANUVIA [Concomitant]
  4. BENADRYL [Concomitant]

REACTIONS (2)
  - Rash generalised [Recovering/Resolving]
  - Pruritus [Unknown]
